FAERS Safety Report 24877270 (Version 1)
Quarter: 2025Q1

REPORT INFORMATION
  Report Type: Spontaneous
  Country: BJ (occurrence: BJ)
  Receive Date: 20250123
  Receipt Date: 20250123
  Transmission Date: 20250409
  Serious: Yes (Life-Threatening, Other)
  Sender: ALKEM
  Company Number: BJ-ALKEM LABORATORIES LIMITED-BJ-ALKEM-2024-21573

PATIENT
  Age: 83 Year
  Sex: Male

DRUGS (1)
  1. MORPHINE SULFATE [Suspect]
     Active Substance: MORPHINE SULFATE
     Indication: Spinal anaesthesia
     Route: 037

REACTIONS (1)
  - Respiratory depression [Unknown]
